FAERS Safety Report 12909054 (Version 1)
Quarter: 2016Q4

REPORT INFORMATION
  Report Type: Spontaneous
  Country: US (occurrence: US)
  Receive Date: 20161103
  Receipt Date: 20161103
  Transmission Date: 20170207
  Serious: No
  Sender: FDA-Public Use
  Company Number: US-JAZZ-2016-US-017052

PATIENT
  Sex: Female

DRUGS (23)
  1. ALIGN [Concomitant]
     Active Substance: BIFIDOBACTERIUM LONGUM SUBSP. INFANTIS
  2. NUVIGIL [Concomitant]
     Active Substance: ARMODAFINIL
  3. FLEXERIL [Concomitant]
     Active Substance: CYCLOBENZAPRINE HYDROCHLORIDE
  4. VITAMIN B12 [Concomitant]
     Active Substance: CYANOCOBALAMIN
  5. ESTER-C [Concomitant]
     Active Substance: CALCIUM\VITAMINS
  6. MAGNESIUM OXIDE. [Concomitant]
     Active Substance: MAGNESIUM OXIDE
  7. CYCLOBENZAPRINE [Concomitant]
     Active Substance: CYCLOBENZAPRINE
  8. COQ10 [Concomitant]
     Active Substance: UBIDECARENONE
  9. DIAZEPAM. [Concomitant]
     Active Substance: DIAZEPAM
  10. XYREM [Suspect]
     Active Substance: SODIUM OXYBATE
     Indication: NARCOLEPSY
     Dosage: 2.25 G, BID
     Route: 048
     Dates: start: 201506, end: 201507
  11. TRIPLEFLEX [Concomitant]
  12. ZYRTEC [Concomitant]
     Active Substance: CETIRIZINE HYDROCHLORIDE
  13. XYREM [Suspect]
     Active Substance: SODIUM OXYBATE
     Dosage: 4.5 G, BID
     Route: 048
     Dates: start: 201507
  14. PRILOSEC [Concomitant]
     Active Substance: OMEPRAZOLE MAGNESIUM
  15. DILTIAZEM. [Concomitant]
     Active Substance: DILTIAZEM
  16. FISH OIL [Concomitant]
     Active Substance: FISH OIL
  17. PATANASE [Concomitant]
     Active Substance: OLOPATADINE HYDROCHLORIDE
  18. TOPROL XL [Concomitant]
     Active Substance: METOPROLOL SUCCINATE
  19. CALCIUM CITRATE + D [Concomitant]
  20. MELOXICAM. [Concomitant]
     Active Substance: MELOXICAM
  21. NASONEX [Concomitant]
     Active Substance: MOMETASONE FUROATE
  22. POTASSIUM [Concomitant]
     Active Substance: POTASSIUM
  23. ADVIL [Concomitant]
     Active Substance: IBUPROFEN

REACTIONS (1)
  - Fibromyalgia [Unknown]
